FAERS Safety Report 19311815 (Version 3)
Quarter: 2021Q3

REPORT INFORMATION
  Report Type: Spontaneous
  Country: JP (occurrence: JP)
  Receive Date: 20210527
  Receipt Date: 20210707
  Transmission Date: 20211014
  Serious: Yes (Hospitalization, Other)
  Sender: FDA-Public Use
  Company Number: JP-TAKEDA-2021TJP026779

PATIENT
  Age: 46 Year
  Sex: Male
  Weight: 65 kg

DRUGS (7)
  1. LOTRIGA 2G [Suspect]
     Active Substance: OMEGA-3-ACID ETHYL ESTERS
     Dosage: 2 GRAM, BID
     Route: 048
     Dates: start: 20160425, end: 20210405
  2. TRICOR [Concomitant]
     Active Substance: FENOFIBRATE
     Indication: HYPERLIPIDAEMIA
     Dosage: UNK
     Route: 048
     Dates: start: 20150323, end: 20201013
  3. LOTRIGA 2G [Suspect]
     Active Substance: OMEGA-3-ACID ETHYL ESTERS
     Indication: DYSLIPIDAEMIA
     Dosage: 2 GRAM, QD
     Route: 048
     Dates: start: 20160411, end: 20160424
  4. FENOFIBRATE. [Concomitant]
     Active Substance: FENOFIBRATE
     Dosage: 160 MILLIGRAM, QD
     Route: 048
     Dates: start: 20210526
  5. FEBURIC [Suspect]
     Active Substance: FEBUXOSTAT
     Indication: HYPERURICAEMIA
     Dosage: 20 MILLIGRAM, QD
     Route: 048
     Dates: start: 20141015, end: 20210405
  6. FENOFIBRATE. [Concomitant]
     Active Substance: FENOFIBRATE
     Indication: HYPERLIPIDAEMIA
     Dosage: 160 MILLIGRAM, QD
     Route: 048
     Dates: start: 20201014, end: 20210405
  7. VALSARTAN. [Suspect]
     Active Substance: VALSARTAN
     Indication: HYPERTENSION
     Dosage: 80 MILLIGRAM, QD
     Route: 048
     Dates: start: 20201111, end: 20210405

REACTIONS (4)
  - Nephropathy toxic [Recovered/Resolved]
  - Malaise [Recovered/Resolved]
  - Weight decreased [Recovering/Resolving]
  - Renal ischaemia [Recovered/Resolved]

NARRATIVE: CASE EVENT DATE: 20200624
